FAERS Safety Report 16106257 (Version 1)
Quarter: 2019Q2

REPORT INFORMATION
  Report Type: Spontaneous
  Country: US (occurrence: US)
  Receive Date: 20190321
  Receipt Date: 20190321
  Transmission Date: 20190711
  Serious: Yes (Other)
  Sender: FDA-Public Use
  Company Number: None

PATIENT
  Age: 38 Year
  Sex: Female
  Weight: 85.28 kg

DRUGS (2)
  1. HYDROXYCHLOROQUINE [Concomitant]
     Active Substance: HYDROXYCHLOROQUINE
     Dates: start: 20190101
  2. ENBREL [Suspect]
     Active Substance: ETANERCEPT
     Indication: PSORIATIC ARTHROPATHY
     Dosage: ?          OTHER FREQUENCY:ONCE A WEEK;?
     Route: 058

REACTIONS (5)
  - Swelling [None]
  - Skin reaction [None]
  - Erythema [None]
  - Injection site reaction [None]
  - Pruritus [None]

NARRATIVE: CASE EVENT DATE: 20190306
